FAERS Safety Report 6918909-3 (Version None)
Quarter: 2010Q3

REPORT INFORMATION
  Report Type: 
  Country: None (occurrence: None)
  Receive Date: 20100811
  Receipt Date: 20100802
  Transmission Date: 20110219
  Serious: Yes (Hospitalization, Disabling)
  Sender: FDA-Public Use
  Company Number: US-ELI_LILLY_AND_COMPANY-US201007007256

PATIENT
  Sex: Male
  Weight: 83.9 kg

DRUGS (6)
  1. PRASUGREL HYDROCHLORIDE [Suspect]
     Indication: ACUTE CORONARY SYNDROME
     Dosage: 10 MG, DAILY (1/D)
     Route: 065
     Dates: start: 20100420
  2. CRESTOR [Concomitant]
     Indication: HYPERCHOLESTEROLAEMIA
     Dosage: 20 MG, DAILY (1/D)
     Route: 048
     Dates: start: 20100419
  3. PRILOSEC [Concomitant]
     Indication: GASTROOESOPHAGEAL REFLUX DISEASE
     Dosage: 20 MG, DAILY (1/D)
     Route: 048
  4. DILTIAZEM [Concomitant]
     Indication: HYPERTENSION
     Dosage: 120 MG, DAILY (1/D)
     Route: 048
     Dates: start: 20090130
  5. ASPIRIN [Concomitant]
     Dosage: 81 MG, DAILY (1/D)
     Dates: start: 20100420
  6. ASPIRIN [Concomitant]
     Dosage: 325 MG, DAILY (1/D)

REACTIONS (1)
  - MYOCARDIAL ISCHAEMIA [None]
